FAERS Safety Report 5726855-6 (Version None)
Quarter: 2008Q2

REPORT INFORMATION
  Report Type: 
  Country: None (occurrence: None)
  Receive Date: 20080502
  Receipt Date: 20080422
  Transmission Date: 20081010
  Serious: Yes (Other)
  Sender: FDA-Public Use
  Company Number: AU-PFIZER INC-2008035945

PATIENT
  Sex: Male

DRUGS (1)
  1. CHAMPIX [Suspect]

REACTIONS (3)
  - ABNORMAL BEHAVIOUR [None]
  - DEPRESSED MOOD [None]
  - LEGAL PROBLEM [None]
